FAERS Safety Report 6271039-9 (Version None)
Quarter: 2009Q3

REPORT INFORMATION
  Report Type: 
  Country: None (occurrence: None)
  Receive Date: 20090716
  Receipt Date: 20090706
  Transmission Date: 20100115
  Serious: Yes (Hospitalization, Other)
  Sender: FDA-Public Use
  Company Number: US-ELI_LILLY_AND_COMPANY-US200903003868

PATIENT
  Sex: Female
  Weight: 91.156 kg

DRUGS (6)
  1. CYMBALTA [Suspect]
     Indication: DIABETIC NEUROPATHY
     Dosage: 60 MG, UNK
     Route: 048
     Dates: start: 20090212, end: 20090305
  2. CYMBALTA [Suspect]
     Dosage: 60 MG, 2/D
     Route: 048
     Dates: start: 20090306, end: 20090314
  3. ZOLOFT [Concomitant]
     Dosage: 100 MG, UNK
  4. ATIVAN [Concomitant]
     Indication: ANXIETY
  5. DARVOCET-N 100 [Concomitant]
     Indication: NEURALGIA
  6. HUMULIN R [Concomitant]
     Indication: DIABETES MELLITUS
     Dosage: 500 U, UNK

REACTIONS (8)
  - AUTONOMIC NERVOUS SYSTEM IMBALANCE [None]
  - COORDINATION ABNORMAL [None]
  - DYSPNOEA [None]
  - EYE SWELLING [None]
  - GAIT DISTURBANCE [None]
  - OCULAR HYPERAEMIA [None]
  - SEROTONIN SYNDROME [None]
  - TREMOR [None]
